FAERS Safety Report 16089198 (Version 1)
Quarter: 2019Q1

REPORT INFORMATION
  Report Type: Report from Study
  Country: GT (occurrence: GT)
  Receive Date: 20190319
  Receipt Date: 20190319
  Transmission Date: 20190418
  Serious: Yes (Other)
  Sender: FDA-Public Use
  Company Number: GT-SA-2019SA071175

PATIENT
  Age: 77 Year
  Sex: Female

DRUGS (1)
  1. HYDROCHLOROTHIAZIDE/IRBESARTAN [Suspect]
     Active Substance: HYDROCHLOROTHIAZIDE\IRBESARTAN
     Indication: HYPERTENSION
     Dosage: 1 DF (150 MG OF IRBESARTAN + 12.5 MG OF HYDROCHLOROTHIAZIDE, EVERY 24 HOURS), QD
     Route: 048
     Dates: start: 201403

REACTIONS (2)
  - Pulmonary oedema [Not Recovered/Not Resolved]
  - Lung infection [Not Recovered/Not Resolved]

NARRATIVE: CASE EVENT DATE: 201901
